FAERS Safety Report 20738861 (Version 1)
Quarter: 2022Q2

REPORT INFORMATION
  Report Type: Report from Study
  Country: ZA (occurrence: ZA)
  Receive Date: 20220422
  Receipt Date: 20220422
  Transmission Date: 20220721
  Serious: Yes (Other)
  Sender: FDA-Public Use
  Company Number: ZA-GILEAD-2022-0578715

PATIENT
  Age: 44 Year
  Sex: Female

DRUGS (1)
  1. EFAVIRENZ\EMTRICITABINE\TENOFOVIR DISOPROXIL FUMARATE [Suspect]
     Active Substance: EFAVIRENZ\EMTRICITABINE\TENOFOVIR DISOPROXIL FUMARATE
     Indication: HIV infection
     Route: 065

REACTIONS (2)
  - Immune reconstitution inflammatory syndrome associated tuberculosis [Unknown]
  - Acute kidney injury [Recovered/Resolved]
